FAERS Safety Report 17158181 (Version 1)
Quarter: 2019Q4

REPORT INFORMATION
  Report Type: Spontaneous
  Country: US (occurrence: US)
  Receive Date: 20191216
  Receipt Date: 20191216
  Transmission Date: 20200122
  Serious: Yes (Other)
  Sender: FDA-Public Use
  Company Number: US-MYLANLABS-2019M1120321

PATIENT
  Age: 89 Year
  Sex: Female
  Weight: 51 kg

DRUGS (1)
  1. FLURAZEPAM [Suspect]
     Active Substance: FLURAZEPAM HYDROCHLORIDE
     Indication: INSOMNIA
     Dosage: 30 MILLIGRAM, QD (EVERY NIGHT BEFORE BED)
     Route: 048
     Dates: end: 20190930

REACTIONS (10)
  - Product availability issue [Not Recovered/Not Resolved]
  - Drug abuser [Not Recovered/Not Resolved]
  - Tremor [Not Recovered/Not Resolved]
  - Abdominal discomfort [Not Recovered/Not Resolved]
  - Insomnia [Not Recovered/Not Resolved]
  - Nervousness [Not Recovered/Not Resolved]
  - Nausea [Not Recovered/Not Resolved]
  - Malaise [Not Recovered/Not Resolved]
  - Weight decreased [Not Recovered/Not Resolved]
  - Loss of personal independence in daily activities [Not Recovered/Not Resolved]

NARRATIVE: CASE EVENT DATE: 201909
